FAERS Safety Report 5015390-9 (Version None)
Quarter: 2006Q2

REPORT INFORMATION
  Report Type: 
  Country: None (occurrence: None)
  Receive Date: 20060530
  Receipt Date: 20060530
  Transmission Date: 20061013
  Serious: No
  Sender: FDA-Public Use
  Company Number: None

PATIENT
  Age: 64 Year
  Sex: Female
  Weight: 47.1741 kg

DRUGS (2)
  1. BONIVA [Suspect]
     Indication: OSTEOPOROSIS
     Dosage: 1 TABLET ONCE A MONTH OTHER
     Dates: start: 20060416, end: 20060516
  2. BONIVA [Concomitant]

REACTIONS (2)
  - OESOPHAGITIS [None]
  - PHARYNGEAL OEDEMA [None]
